FAERS Safety Report 18207743 (Version 1)
Quarter: 2020Q3

REPORT INFORMATION
  Report Type: Spontaneous
  Country: US (occurrence: US)
  Receive Date: 20200828
  Receipt Date: 20200828
  Transmission Date: 20201103
  Serious: Yes (Death, Hospitalization)
  Sender: FDA-Public Use
  Company Number: None

PATIENT
  Sex: Male
  Weight: 93 kg

DRUGS (2)
  1. DAUNORUBICIN [Suspect]
     Active Substance: DAUNORUBICIN
     Dates: end: 20200821
  2. CYTARABINE. [Suspect]
     Active Substance: CYTARABINE
     Dates: end: 20200821

REACTIONS (12)
  - Hypotension [None]
  - Myocardial necrosis [None]
  - Pneumonia [None]
  - Pleural effusion [None]
  - Cardiac arrest [None]
  - Atelectasis [None]
  - Sinus tachycardia [None]
  - Klebsiella test positive [None]
  - Respiratory distress [None]
  - Multiple organ dysfunction syndrome [None]
  - Tachypnoea [None]
  - Malignant pleural effusion [None]

NARRATIVE: CASE EVENT DATE: 20200825
